FAERS Safety Report 7865411-0 (Version None)
Quarter: 2011Q4

REPORT INFORMATION
  Report Type: 
  Country: None (occurrence: None)
  Receive Date: 20111028
  Receipt Date: 20101217
  Transmission Date: 20120403
  Serious: No
  Sender: FDA-Public Use
  Company Number: US-GLAXOSMITHKLINE-A0900364A

PATIENT
  Age: 85 Year
  Sex: Female

DRUGS (13)
  1. RANITIDINE [Concomitant]
  2. ADVAIR DISKUS 100/50 [Suspect]
     Indication: ABASIA
     Dosage: 1PUFF TWICE PER DAY
     Route: 055
     Dates: start: 20100301
  3. ENTERIC ASPIRIN [Concomitant]
  4. LANOXIN [Concomitant]
  5. LOVASTATIN [Concomitant]
  6. CALCIUM CARBONATE [Concomitant]
  7. METOPROLOL TARTRATE [Concomitant]
  8. METROGEL [Concomitant]
  9. NITROGLYCERIN [Concomitant]
  10. LEVOXYL [Concomitant]
  11. MULTI-VITAMIN [Concomitant]
  12. ALENDRONATE SODIUM [Concomitant]
  13. ACETAMINOPHEN [Concomitant]

REACTIONS (2)
  - DYSPHONIA [None]
  - ORAL DISORDER [None]
